FAERS Safety Report 23595691 (Version 1)
Quarter: 2024Q1

REPORT INFORMATION
  Report Type: Spontaneous
  Country: US (occurrence: None)
  Receive Date: 20240304
  Receipt Date: 20240304
  Transmission Date: 20240410
  Serious: Yes (Life-Threatening, Disabling)
  Sender: FDA-Public Use
  Company Number: None

PATIENT
  Age: 49 Year
  Sex: Female
  Weight: 47.7 kg

DRUGS (5)
  1. BISOPROLOL FUMARATE [Suspect]
     Active Substance: BISOPROLOL FUMARATE
     Indication: Ventricular extrasystoles
     Dosage: OTHER QUANTITY : 1 TABLET(S);?FREQUENCY : AT BEDTIME;?
     Route: 048
     Dates: start: 20110210, end: 20221121
  2. LEVOTHYROXINE [Concomitant]
  3. AMLODIPINE [Concomitant]
  4. VITAMIN C [Concomitant]
     Active Substance: ASCORBIC ACID
  5. VITAMIN D [Concomitant]
     Active Substance: VITAMIN D NOS

REACTIONS (12)
  - Heart rate increased [None]
  - Heart rate irregular [None]
  - Dyspnoea [None]
  - Dizziness [None]
  - Dizziness [None]
  - Anxiety [None]
  - Insomnia [None]
  - Wrong product administered [None]
  - Speech disorder [None]
  - Headache [None]
  - Anger [None]
  - Product dispensing error [None]

NARRATIVE: CASE EVENT DATE: 20220902
